FAERS Safety Report 5753032-5 (Version None)
Quarter: 2008Q2

REPORT INFORMATION
  Report Type: 
  Country: None (occurrence: None)
  Receive Date: 20080529
  Receipt Date: 20080520
  Transmission Date: 20081010
  Serious: Yes (Other)
  Sender: FDA-Public Use
  Company Number: MW-GILEAD-2007-0014639

PATIENT
  Sex: Female

DRUGS (19)
  1. EMTRICITABINE [Suspect]
     Dates: start: 20060908, end: 20071017
  2. ATAZANAVIR SULFATE [Concomitant]
     Dates: start: 20060908, end: 20071017
  3. DDI-EC [Concomitant]
     Dates: start: 20060908, end: 20071017
  4. LOFEMINAL [Concomitant]
     Dates: start: 20061101
  5. FES04 TABS [Concomitant]
     Dates: start: 20061129, end: 20070219
  6. FES04 TABS [Concomitant]
     Dates: start: 20070420, end: 20070711
  7. FES04 TABS [Concomitant]
     Dates: start: 20070731
  8. COTRIM [Concomitant]
     Dates: start: 20070124, end: 20070202
  9. ACETAMINOPHEN [Concomitant]
     Dates: start: 20070124, end: 20070129
  10. ACETAMINOPHEN [Concomitant]
     Dates: start: 20070221, end: 20070225
  11. ACETAMINOPHEN [Concomitant]
     Dates: end: 20070425
  12. ACETAMINOPHEN [Concomitant]
     Dates: start: 20070810, end: 20070814
  13. CIPROFLOXACIN HCL [Concomitant]
     Dates: start: 20070221, end: 20070322
  14. QUININE [Concomitant]
     Dates: start: 20070420, end: 20070426
  15. ALBENDAZOLE [Concomitant]
     Dates: start: 20070420, end: 20070420
  16. ALBENDAZOLE [Concomitant]
     Dates: start: 20070731, end: 20070731
  17. AMOXICILLIN [Concomitant]
     Dates: start: 20070810, end: 20070816
  18. FANSIDA [Concomitant]
     Dates: start: 20070731, end: 20070731
  19. FANSIDA [Concomitant]
     Dates: start: 20070904, end: 20070904

REACTIONS (1)
  - STILLBIRTH [None]
